FAERS Safety Report 5456462-4 (Version None)
Quarter: 2007Q3

REPORT INFORMATION
  Report Type: 
  Country: None (occurrence: None)
  Receive Date: 20070914
  Receipt Date: 20070914
  Transmission Date: 20080115
  Serious: Yes (Life-Threatening, Other)
  Sender: FDA-Public Use
  Company Number: None

PATIENT
  Age: 80 Year
  Sex: Male
  Weight: 93.8946 kg

DRUGS (4)
  1. PLAVIX [Suspect]
     Dosage: 75 QD PO
     Route: 048
  2. DILTIAZEM [Suspect]
     Dosage: 240 MG  QD  PO
     Route: 048
  3. WARFARIN SODIUM [Concomitant]
  4. ASPIRIN [Concomitant]

REACTIONS (4)
  - ANAEMIA [None]
  - GASTROINTESTINAL HAEMORRHAGE [None]
  - HAEMORRHAGE [None]
  - MYOCARDIAL INFARCTION [None]
